FAERS Safety Report 6120158-6 (Version None)
Quarter: 2009Q1

REPORT INFORMATION
  Report Type: 
  Country: None (occurrence: None)
  Receive Date: 20090316
  Receipt Date: 20090302
  Transmission Date: 20090719
  Serious: No
  Sender: FDA-Public Use
  Company Number: US-ABBOTT-09P-163-0560574-00

PATIENT
  Age: 65 Year
  Sex: Male

DRUGS (7)
  1. TRILIPIX [Suspect]
     Indication: DRUG USE FOR UNKNOWN INDICATION
     Dates: start: 20090106, end: 20090117
  2. ATENOLOL [Concomitant]
     Indication: DRUG USE FOR UNKNOWN INDICATION
  3. VYTORIN [Concomitant]
     Indication: DRUG USE FOR UNKNOWN INDICATION
     Dosage: 10/20MG
  4. TRIAMTEREN HCTZ [Concomitant]
     Indication: DRUG USE FOR UNKNOWN INDICATION
  5. MECLIZINE [Concomitant]
     Indication: DRUG USE FOR UNKNOWN INDICATION
  6. ASPIRIN [Concomitant]
     Indication: DRUG USE FOR UNKNOWN INDICATION
  7. NITROGLYCERIN [Concomitant]
     Indication: CHEST PAIN

REACTIONS (3)
  - ABDOMINAL DISCOMFORT [None]
  - ASTHENIA [None]
  - FEELING HOT [None]
